FAERS Safety Report 15105809 (Version 2)
Quarter: 2018Q3

REPORT INFORMATION
  Report Type: Spontaneous
  Country: US (occurrence: US)
  Receive Date: 20180704
  Receipt Date: 20180722
  Transmission Date: 20181010
  Serious: No
  Sender: FDA-Public Use
  Company Number: US-009507513-1807USA001124

PATIENT
  Age: 15 Year
  Sex: Female
  Weight: 64.86 kg

DRUGS (1)
  1. NEXPLANON [Suspect]
     Active Substance: ETONOGESTREL
     Dosage: DOSE 68 MG, ONCE
     Route: 059
     Dates: start: 20170426, end: 2018

REACTIONS (4)
  - Menorrhagia [Unknown]
  - Dysmenorrhoea [Unknown]
  - Depression [Unknown]
  - Metrorrhagia [Unknown]

NARRATIVE: CASE EVENT DATE: 20180626
